FAERS Safety Report 25565210 (Version 2)
Quarter: 2025Q3

REPORT INFORMATION
  Report Type: Spontaneous
  Country: US (occurrence: US)
  Receive Date: 20250716
  Receipt Date: 20250716
  Transmission Date: 20251021
  Serious: Yes (Hospitalization, Other)
  Sender: NOVO NORDISK
  Company Number: US-NOVOPROD-1296995

PATIENT
  Age: 34 Year
  Sex: Female
  Weight: 114.74 kg

DRUGS (17)
  1. OZEMPIC [Suspect]
     Active Substance: SEMAGLUTIDE
     Indication: Type 2 diabetes mellitus
     Dates: start: 20230401, end: 20230420
  2. MOUNJARO [Suspect]
     Active Substance: TIRZEPATIDE
     Dosage: 5 MG, QW
     Dates: start: 20230617, end: 20230801
  3. MOUNJARO [Suspect]
     Active Substance: TIRZEPATIDE
     Dosage: 7.5 MG, QW
     Dates: start: 20230805, end: 20231127
  4. MOUNJARO [Suspect]
     Active Substance: TIRZEPATIDE
     Dosage: 10 MG, QW
     Dates: start: 20231201, end: 20231214
  5. MOUNJARO [Suspect]
     Active Substance: TIRZEPATIDE
     Indication: Type 2 diabetes mellitus
     Dosage: 2.5 MG, QW
     Dates: start: 20230530, end: 20230611
  6. MOUNJARO [Suspect]
     Active Substance: TIRZEPATIDE
     Dosage: 7.5 MG, QW
     Dates: start: 20231223, end: 20240123
  7. OZEMPIC [Suspect]
     Active Substance: SEMAGLUTIDE
     Indication: Type 2 diabetes mellitus
     Dosage: 1 MG, QW
     Dates: start: 20230421, end: 20230529
  8. METFORMIN [Concomitant]
     Active Substance: METFORMIN HYDROCHLORIDE
     Indication: Type 2 diabetes mellitus
     Dates: start: 20210101
  9. GLIPIZIDE [Concomitant]
     Active Substance: GLIPIZIDE
     Indication: Type 2 diabetes mellitus
     Dates: start: 20230413, end: 20231201
  10. LANTUS [Concomitant]
     Active Substance: INSULIN GLARGINE
     Indication: Type 2 diabetes mellitus
     Dates: start: 20230201
  11. ATORVASTATIN [Concomitant]
     Active Substance: ATORVASTATIN
     Indication: Blood triglycerides increased
  12. ATORVASTATIN [Concomitant]
     Active Substance: ATORVASTATIN
     Indication: Blood cholesterol increased
     Dates: start: 20230811, end: 20231001
  13. FAMOTIDINE [Concomitant]
     Active Substance: FAMOTIDINE
     Indication: Abdominal discomfort
     Dates: start: 20230510, end: 20230901
  14. DOXYCYCLINE [Concomitant]
     Active Substance: DOXYCYCLINE
     Indication: Infection
     Dates: start: 20240106
  15. VENTOLIN [Concomitant]
     Active Substance: ALBUTEROL SULFATE
     Indication: Product used for unknown indication
     Dates: start: 20240106
  16. PREDNISONE [Concomitant]
     Active Substance: PREDNISONE
     Indication: Asthma
     Dates: start: 20240106
  17. MEDROXYPROGESTERONE [Concomitant]
     Active Substance: MEDROXYPROGESTERONE
     Indication: Reproductive tract disorder
     Dates: start: 20230801, end: 20240501

REACTIONS (3)
  - Impaired gastric emptying [Not Recovered/Not Resolved]
  - Constipation [Not Recovered/Not Resolved]
  - Off label use [Unknown]

NARRATIVE: CASE EVENT DATE: 20230301
